FAERS Safety Report 8276762-2 (Version None)
Quarter: 2012Q2

REPORT INFORMATION
  Report Type: 
  Country: None (occurrence: None)
  Receive Date: 20120412
  Receipt Date: 20120403
  Transmission Date: 20120825
  Serious: Yes (Life-Threatening, Hospitalization)
  Sender: FDA-Public Use
  Company Number: DE-JNJFOC-20120104454

PATIENT
  Sex: Female
  Weight: 84 kg

DRUGS (5)
  1. XARELTO [Suspect]
     Indication: HIP ARTHROPLASTY
     Route: 065
     Dates: start: 20111110, end: 20111214
  2. VOLTAREN [Concomitant]
     Indication: PAIN
     Dates: start: 20111110, end: 20111124
  3. METAMIZOL [Concomitant]
     Indication: PAIN
     Dates: start: 20111110, end: 20111124
  4. PANTOPRAZOLE [Concomitant]
     Indication: PROPHYLAXIS AGAINST GASTROINTESTINAL ULCER
  5. XARELTO [Suspect]
     Indication: THROMBOSIS PROPHYLAXIS
     Route: 065
     Dates: start: 20111110, end: 20111214

REACTIONS (6)
  - COMA HEPATIC [None]
  - HEPATIC ENCEPHALOPATHY [None]
  - JAUNDICE [None]
  - HEPATIC FUNCTION ABNORMAL [None]
  - ACUTE HEPATIC FAILURE [None]
  - COAGULOPATHY [None]
